FAERS Safety Report 14561625 (Version 1)
Quarter: 2018Q1

REPORT INFORMATION
  Report Type: Spontaneous
  Country: US (occurrence: US)
  Receive Date: 20180221
  Receipt Date: 20180221
  Transmission Date: 20180509
  Serious: No
  Sender: FDA-Public Use
  Company Number: None

PATIENT
  Sex: Female

DRUGS (1)
  1. HUMIRA [Suspect]
     Active Substance: ADALIMUMAB
     Indication: RASH PAPULOSQUAMOUS
     Route: 058
     Dates: start: 20171212, end: 20180220

REACTIONS (8)
  - Aphthous ulcer [None]
  - Eyelid ptosis [None]
  - Pain in extremity [None]
  - Dyspnoea [None]
  - Tremor [None]
  - Rash [None]
  - Heart rate increased [None]
  - Chest pain [None]
